FAERS Safety Report 15694150 (Version 3)
Quarter: 2019Q1

REPORT INFORMATION
  Report Type: Report from Study
  Country: BR (occurrence: BR)
  Receive Date: 20181206
  Receipt Date: 20190201
  Transmission Date: 20190417
  Serious: Yes (Other)
  Sender: FDA-Public Use
  Company Number: PHHY2018BR059743

PATIENT
  Age: 41 Year
  Sex: Male
  Weight: 88 kg

DRUGS (4)
  1. VOTRIENT [Suspect]
     Active Substance: PAZOPANIB HYDROCHLORIDE
     Indication: METASTASES TO LUNG
     Dosage: 800 MG, QD
     Route: 048
     Dates: start: 201807
  2. VOTRIENT [Suspect]
     Active Substance: PAZOPANIB HYDROCHLORIDE
     Dosage: 800 MG, QD
     Route: 048
  3. VOTRIENT [Suspect]
     Active Substance: PAZOPANIB HYDROCHLORIDE
     Dosage: 800 MG, QD
     Route: 048
  4. VOTRIENT [Suspect]
     Active Substance: PAZOPANIB HYDROCHLORIDE
     Indication: METASTATIC RENAL CELL CARCINOMA
     Dosage: 2 DF, QD (800 MG)
     Route: 048
     Dates: start: 20180705

REACTIONS (53)
  - Weight increased [Not Recovered/Not Resolved]
  - Hyperacusis [Not Recovered/Not Resolved]
  - Photosensitivity reaction [Not Recovered/Not Resolved]
  - Attention deficit/hyperactivity disorder [Not Recovered/Not Resolved]
  - Vomiting [Recovered/Resolved]
  - Weight decreased [Unknown]
  - Depression [Not Recovered/Not Resolved]
  - Malaise [Unknown]
  - Fatigue [Unknown]
  - Mouth injury [Unknown]
  - Testicular pain [Unknown]
  - Rash [Unknown]
  - Haemorrhage [Recovered/Resolved]
  - Metastases to kidney [Not Recovered/Not Resolved]
  - Salivary hypersecretion [Recovering/Resolving]
  - Colitis [Unknown]
  - Skin disorder [Unknown]
  - Epigastric discomfort [Not Recovered/Not Resolved]
  - Asthenia [Not Recovered/Not Resolved]
  - Oral pain [Recovered/Resolved]
  - Nausea [Unknown]
  - Flatulence [Not Recovered/Not Resolved]
  - Aggression [Unknown]
  - Affect lability [Not Recovered/Not Resolved]
  - Oral disorder [Recovered/Resolved]
  - Anal haemorrhage [Recovering/Resolving]
  - Oral discomfort [Not Recovered/Not Resolved]
  - Gastrointestinal tract irritation [Not Recovered/Not Resolved]
  - Glossodynia [Unknown]
  - Toothache [Recovered/Resolved]
  - Feeling abnormal [Recovered/Resolved]
  - Sensitive skin [Not Recovered/Not Resolved]
  - Quality of life decreased [Not Recovered/Not Resolved]
  - Metastases to lung [Unknown]
  - Mental status changes [Unknown]
  - Pain of skin [Recovered/Resolved]
  - Alopecia [Recovered/Resolved]
  - Abdominal pain upper [Not Recovered/Not Resolved]
  - Procedural pain [Recovered/Resolved]
  - Urinary tract injury [Unknown]
  - Tooth discolouration [Unknown]
  - Gingival pain [Recovered/Resolved]
  - Psychotic disorder [Not Recovered/Not Resolved]
  - Dizziness [Unknown]
  - Renal pain [Not Recovered/Not Resolved]
  - Abdominal discomfort [Not Recovered/Not Resolved]
  - Hair colour changes [Not Recovered/Not Resolved]
  - Headache [Not Recovered/Not Resolved]
  - Vomiting [Unknown]
  - Acne [Recovered/Resolved]
  - Gastrooesophageal reflux disease [Unknown]
  - Abdominal discomfort [Unknown]
  - Diarrhoea [Unknown]

NARRATIVE: CASE EVENT DATE: 201807
